FAERS Safety Report 6417166-4 (Version None)
Quarter: 2009Q4

REPORT INFORMATION
  Report Type: 
  Country: None (occurrence: None)
  Receive Date: 20091026
  Receipt Date: 20091012
  Transmission Date: 20100525
  Serious: Yes (Other)
  Sender: FDA-Public Use
  Company Number: S07-DEN-06335-01

PATIENT
  Age: 62 Year
  Sex: Male

DRUGS (18)
  1. ESCITALOPRAM [Suspect]
     Indication: DEPRESSION
     Dosage: 5 MG (5 MG, 1 IN 1 D), ORAL
     Route: 048
     Dates: start: 20070911, end: 20070912
  2. PRIMPERAN TAB [Suspect]
     Dosage: 10 MG (10 MG, 1 IN 1 D), ORAL
     Route: 048
     Dates: start: 20070613, end: 20070913
  3. DIMITONE (CARVEDILOL) (CARVEDILOL) [Concomitant]
  4. AMLODIPINE [Concomitant]
  5. CARDOPAX (ISOSORBIDE DINITRATE) (ISOSORBIDE DINITRATE) [Concomitant]
  6. FURIX (FUROSEMIDE) (FUROSEMIDE) [Concomitant]
  7. HJERTEMAGNYL [Concomitant]
  8. RAMIPRIL [Concomitant]
  9. SIMVASTATIN [Concomitant]
  10. SPIROCORT (BUDESONIDE) (SOLUTION) (BUDESONIDE) [Concomitant]
  11. PANTOPRAZOLE [Concomitant]
  12. PLAVIX [Concomitant]
  13. FEM-MONO RETARD [Concomitant]
  14. BRICANYL (TERBUTALINE SULFATE) (TERBUTALINE SULFATE) [Concomitant]
  15. SPIRIX (SPIRONOLACTONE) (SPIRONOLACTONE) [Concomitant]
  16. TRAVATAN (TRAVOPROST) (LIQUID) (TRAVOPROST) [Concomitant]
  17. NITROGLYCERIN [Concomitant]
  18. TRIATEC (TABLETS) [Concomitant]

REACTIONS (4)
  - DRUG INTERACTION [None]
  - MUSCLE SPASMS [None]
  - MYOCLONUS [None]
  - POOR QUALITY SLEEP [None]
